FAERS Safety Report 15673844 (Version 4)
Quarter: 2019Q1

REPORT INFORMATION
  Report Type: Spontaneous
  Country: US (occurrence: US)
  Receive Date: 20181129
  Receipt Date: 20190319
  Transmission Date: 20190417
  Serious: Yes (Death, Hospitalization)
  Sender: FDA-Public Use
  Company Number: US-PFIZER INC-2018437790

PATIENT
  Age: 74 Year
  Sex: Male

DRUGS (27)
  1. LYRICA [Suspect]
     Active Substance: PREGABALIN
     Indication: NECK PAIN
     Dosage: 300 MG, DAILY (100 MG 3/DAY)
     Dates: start: 201612
  2. NITROSTAT [Suspect]
     Active Substance: NITROGLYCERIN
     Indication: HEART RATE IRREGULAR
     Dosage: 0.4 MG, AS NEEDED
     Dates: start: 201608
  3. COLCHICINE. [Concomitant]
     Active Substance: COLCHICINE
     Dosage: 0.6 MG, AS NEEDED
  4. IPRATROPIUM [Concomitant]
     Active Substance: IPRATROPIUM
     Dosage: UNK UNK, AS NEEDED (0.06 NASAL SPRAY)
     Route: 045
  5. VITAMIN D3 [Concomitant]
     Active Substance: CHOLECALCIFEROL
     Dosage: 4000 MG, 1X/DAY (TIME TAKEN: BED TIME)
  6. LYRICA [Suspect]
     Active Substance: PREGABALIN
     Dosage: 50 MG, 1X/DAY (TIME TAKEN: NOON)
  7. ELIQUIS [Suspect]
     Active Substance: APIXABAN
     Dosage: 2.5 MG, 2X/DAY (EVERY 12 HOURS, AM AND BED TIME)
  8. ASPIRINE [Concomitant]
     Active Substance: ASPIRIN
     Dosage: 81 MG, 1X/DAY (TIME TAKEN: AM)
  9. CEPHALEXINE [Concomitant]
     Active Substance: CEPHALEXIN
     Dosage: 500 MG, 4X/DAY (BEFORE DENTAL VISITS)
  10. CITALOPRAM [Concomitant]
     Active Substance: CITALOPRAM HYDROBROMIDE
     Dosage: 20 MG, 1X/DAY (TIME TAKEN: BED TIME)
  11. TRAZODONE [Concomitant]
     Active Substance: TRAZODONE HYDROCHLORIDE
     Dosage: 100 MG, 1X/DAY (TIME TAKEN: BED TIME)
  12. FLECTOR [Suspect]
     Active Substance: DICLOFENAC EPOLAMINE
     Indication: BACK PAIN
     Dosage: UNK UNK, 2X/DAY (1.370 MEDICATION EVERY 12 HOUR)
     Dates: start: 201612
  13. TAMSULOSIN [Concomitant]
     Active Substance: TAMSULOSIN
     Dosage: 0.4 MG, 1X/DAY (TIME TAKEN: NOON )
  14. BUMETANIDE. [Concomitant]
     Active Substance: BUMETANIDE
     Dosage: 1 MG, 2X/DAY (TIME TAKEN: AM + EVE)
  15. ELIQUIS [Suspect]
     Active Substance: APIXABAN
     Indication: ATRIAL FIBRILLATION
     Dosage: 0.5 MG, 2X/DAY
     Dates: start: 201612
  16. METOPROLOL ER SUCCINATE [Concomitant]
     Active Substance: METOPROLOL SUCCINATE
     Dosage: 100 MG, 1X/DAY (TIME TAKEN: AM)
  17. MOVANTIK [Concomitant]
     Active Substance: NALOXEGOL OXALATE
     Dosage: 25 MG, 1X/DAY (TIME TAKEN: AM )
  18. OMEPRAZOLE. [Concomitant]
     Active Substance: OMEPRAZOLE
     Dosage: 40 MG, 1X/DAY (TIME TAKEN: AM)
  19. OXYCODONE [Concomitant]
     Active Substance: OXYCODONE
     Dosage: 60 MG, AS NEEDED (4/DAY)
  20. POTASSIUM CHLORIDE. [Concomitant]
     Active Substance: POTASSIUM CHLORIDE
     Dosage: 10 MEQ, 2X/DAY (TIME TAKEN: AM + BED TIME )
  21. LIPITOR [Concomitant]
     Active Substance: ATORVASTATIN CALCIUM
     Dosage: 80 MG, 1X/DAY (TIME TAKEN: BED TIME)
  22. JARDIANCE [Concomitant]
     Active Substance: EMPAGLIFLOZIN
     Dosage: 10 MG, 1X/DAY (TIME TAKEN: AM)
  23. MAGNESIUM [Concomitant]
     Active Substance: MAGNESIUM
     Dosage: 500 MG, 1X/DAY (TIME TAKEN: NOON)
  24. TIZANIDINE. [Concomitant]
     Active Substance: TIZANIDINE
     Dosage: 4MG/0.1 ML , 1X/DAY (TIME TAKEN: BED TIME)
  25. METFORMIN HCL [Concomitant]
     Active Substance: METFORMIN HYDROCHLORIDE
     Dosage: 1000 MG, 2X/DAY (TIME TAKEN: AM AND EVE)
  26. NARCAN [Concomitant]
     Active Substance: NALOXONE HYDROCHLORIDE
     Dosage: 4 MG/ 0.1 ML  AS NEEDED
     Route: 045
  27. UBIQUINOL [Concomitant]
     Active Substance: UBIQUINOL
     Dosage: 200 MG, 1X/DAY (TIME TAKEN: BED TIME)

REACTIONS (1)
  - Myocardial infarction [Fatal]

NARRATIVE: CASE EVENT DATE: 20180829
